FAERS Safety Report 7363275-5 (Version None)
Quarter: 2011Q1

REPORT INFORMATION
  Report Type: 
  Country: None (occurrence: None)
  Receive Date: 20110321
  Receipt Date: 20110308
  Transmission Date: 20110831
  Serious: Yes (Other)
  Sender: FDA-Public Use
  Company Number: FR-JNJFOC-20110106955

PATIENT
  Age: 38 Year
  Sex: Male
  Weight: 73 kg

DRUGS (11)
  1. BI-PROFENID [Concomitant]
     Indication: SPONDYLITIS
     Route: 048
  2. REMICADE [Suspect]
     Dosage: 3 DOSES ON UNSPECIFIED DATES
     Route: 042
  3. REMICADE [Suspect]
     Indication: PSORIATIC ARTHROPATHY
     Dosage: 4TH DOSE
     Route: 042
  4. REMICADE [Suspect]
     Dosage: 3 DOSES ON UNSPECIFIED DATES
     Route: 042
  5. REMICADE [Suspect]
     Dosage: 3 DOSES ON UNSPECIFIED DATES
     Route: 042
  6. DEDROGYL [Concomitant]
     Indication: VITAMIN D DEFICIENCY
  7. REMICADE [Suspect]
     Indication: RHEUMATOID ARTHRITIS
     Dosage: 4TH DOSE
     Route: 042
  8. REMICADE [Suspect]
     Dosage: 3 DOSES ON UNSPECIFIED DATES
     Route: 042
  9. REMICADE [Suspect]
     Dosage: 3 DOSES ON UNSPECIFIED DATES
     Route: 042
  10. REMICADE [Suspect]
     Dosage: 3 DOSES ON UNSPECIFIED DATES
     Route: 042
  11. MOPRAL [Concomitant]
     Route: 048

REACTIONS (4)
  - INFUSION RELATED REACTION [None]
  - DRUG HYPERSENSITIVITY [None]
  - RESPIRATORY DISORDER [None]
  - GENERALISED ERYTHEMA [None]
